FAERS Safety Report 20048960 (Version 3)
Quarter: 2023Q4

REPORT INFORMATION
  Report Type: Spontaneous
  Country: CH (occurrence: CH)
  Receive Date: 20211109
  Receipt Date: 20231113
  Transmission Date: 20240110
  Serious: Yes (Hospitalization, Other)
  Sender: FDA-Public Use
  Company Number: CH-SA-SAC20211102000853

PATIENT
  Age: 47 Year
  Sex: Female
  Weight: 82 kg

DRUGS (29)
  1. MYOZYME [Suspect]
     Active Substance: ALGLUCOSIDASE ALFA
     Indication: Glycogen storage disease type II
     Dosage: 20 MG/KG, QOW (DURATION: 5 HOURS)
     Route: 065
     Dates: start: 20111125
  2. MYOZYME [Suspect]
     Active Substance: ALGLUCOSIDASE ALFA
     Dosage: 20 MG/KG, QOW (DURATION: 5 HOURS)
     Route: 065
     Dates: start: 20120612
  3. MYOZYME [Suspect]
     Active Substance: ALGLUCOSIDASE ALFA
     Dosage: 20 MG/KG, QOW (DURATION: 5 HOURS 30 MINUTES)
     Route: 065
     Dates: start: 20121102
  4. MYOZYME [Suspect]
     Active Substance: ALGLUCOSIDASE ALFA
     Dosage: 20 MG/KG, QOW (DURATION: 5 HOURS 30 MINUTES)
     Route: 065
     Dates: start: 20130429
  5. MYOZYME [Suspect]
     Active Substance: ALGLUCOSIDASE ALFA
     Dosage: 20 MG/KG, QOW (DURATION: 5 HOURS 30 MINUTES)
     Route: 065
     Dates: start: 20131029
  6. MYOZYME [Suspect]
     Active Substance: ALGLUCOSIDASE ALFA
     Dosage: 20 MG/KG, QOW (DURATION: 5 HOURS)
     Route: 065
     Dates: start: 20140416
  7. MYOZYME [Suspect]
     Active Substance: ALGLUCOSIDASE ALFA
     Dosage: 20 MG/KG, QOW (DURATION: 5 HOURS)
     Route: 065
     Dates: start: 20141029
  8. MYOZYME [Suspect]
     Active Substance: ALGLUCOSIDASE ALFA
     Dosage: 1750 MG/KG; FREQUENCY: OTHER; INTERRUPTION OF THERAPY (}= 1 MONTH IN DURATION UT NOT PERMANENT)
     Route: 065
     Dates: start: 20150203
  9. MYOZYME [Suspect]
     Active Substance: ALGLUCOSIDASE ALFA
     Dosage: RESTART OF THERAPY, QOW
     Route: 065
     Dates: start: 20151203
  10. MYOZYME [Suspect]
     Active Substance: ALGLUCOSIDASE ALFA
     Dosage: 20 MG/KG, QOW (DURATION: 5 HOURS)
     Route: 065
     Dates: start: 20160425
  11. MYOZYME [Suspect]
     Active Substance: ALGLUCOSIDASE ALFA
     Dosage: 20 MG/KG, QOW (DURATION: 5 HOURS)
     Route: 065
     Dates: start: 20161026
  12. MYOZYME [Suspect]
     Active Substance: ALGLUCOSIDASE ALFA
     Dosage: 20 MG/KG, QOW (DURATION: 5 HOURS)
     Route: 065
     Dates: start: 20170329
  13. MYOZYME [Suspect]
     Active Substance: ALGLUCOSIDASE ALFA
     Dosage: 20 MG/KG, QOW (DURATION: 5 HOURS)
     Route: 065
     Dates: start: 20171024
  14. MYOZYME [Suspect]
     Active Substance: ALGLUCOSIDASE ALFA
     Dosage: 20 MG/KG, QOW (DURATION: 5 HOURS)
     Route: 065
     Dates: start: 20180426
  15. MYOZYME [Suspect]
     Active Substance: ALGLUCOSIDASE ALFA
     Dosage: 20 MG/KG, QOW (DURATION: 5 HOURS)
     Route: 065
     Dates: start: 20181001
  16. MYOZYME [Suspect]
     Active Substance: ALGLUCOSIDASE ALFA
     Dosage: 20 MG/KG, QOW (DURATION: 5 HOURS)
     Route: 065
     Dates: start: 20190423
  17. MYOZYME [Suspect]
     Active Substance: ALGLUCOSIDASE ALFA
     Dosage: 20 MG/KG, QOW (DURATION: 4 HOURS 30 MINUTES)
     Route: 065
     Dates: start: 20191010
  18. MYOZYME [Suspect]
     Active Substance: ALGLUCOSIDASE ALFA
     Dosage: 20 MG/KG, QOW (DURATION: 4 HOURS 30 MINUTES)
     Route: 065
     Dates: start: 20201020
  19. MYOZYME [Suspect]
     Active Substance: ALGLUCOSIDASE ALFA
     Dosage: 20 MG/KG, QOW (DURATION: 4 HOURS 30 MINUTES)
     Route: 065
     Dates: start: 20210412
  20. MYOZYME [Suspect]
     Active Substance: ALGLUCOSIDASE ALFA
     Dosage: 20 MG/KG, QOW (DURATION: 4 HOURS 30 MINUTES)
     Route: 065
     Dates: start: 20220131
  21. MYOZYME [Suspect]
     Active Substance: ALGLUCOSIDASE ALFA
     Dosage: 20 MG/KG, QOW (DURATION: 4 HOURS 30 MINUTES)
     Route: 065
     Dates: start: 20220824
  22. TRAMADOL [Concomitant]
     Active Substance: TRAMADOL\TRAMADOL HYDROCHLORIDE
     Indication: Depression
     Dosage: UNK
     Dates: start: 20130416
  23. XOLAIR [Concomitant]
     Active Substance: OMALIZUMAB
     Dosage: UNK
     Dates: start: 20151012, end: 20151130
  24. XOLAIR [Concomitant]
     Active Substance: OMALIZUMAB
     Dosage: UNK
     Dates: start: 20160414
  25. CLEMASTINE FUMARATE [Concomitant]
     Active Substance: CLEMASTINE FUMARATE
     Dosage: UNK
     Dates: start: 20151203, end: 20220824
  26. VITAMIN D3 [Concomitant]
     Active Substance: CHOLECALCIFEROL
     Dosage: UNK
     Dates: start: 20160425, end: 20220824
  27. NOVALGIN (METAMIZOLE SODIUM) [Concomitant]
     Active Substance: METAMIZOLE SODIUM
     Dosage: UNK
     Dates: start: 20220131
  28. ALVESCO [Concomitant]
     Active Substance: CICLESONIDE
     Dosage: UNK
     Dates: start: 20220824
  29. CODEINE PHOSPHATE [Concomitant]
     Active Substance: CODEINE PHOSPHATE
     Dosage: UNK
     Dates: start: 20220824

REACTIONS (10)
  - Extrasystoles [Unknown]
  - Left ventricular failure [Not Recovered/Not Resolved]
  - Ventricular extrasystoles [Unknown]
  - COVID-19 [Not Recovered/Not Resolved]
  - Magnetic resonance imaging abnormal [Not Recovered/Not Resolved]
  - Dermatitis allergic [Not Recovered/Not Resolved]
  - Type II hypersensitivity [Recovered/Resolved]
  - Bradycardia [Recovered/Resolved]
  - Nausea [Recovered/Resolved]
  - Dyspnoea [Recovered/Resolved]

NARRATIVE: CASE EVENT DATE: 20150203
